FAERS Safety Report 19611276 (Version 2)
Quarter: 2021Q3

REPORT INFORMATION
  Report Type: Spontaneous
  Country: CH (occurrence: CH)
  Receive Date: 20210726
  Receipt Date: 20210824
  Transmission Date: 20211014
  Serious: Yes (Other)
  Sender: FDA-Public Use
  Company Number: CH-GILEAD-2021-0541222

PATIENT
  Age: 28 Year
  Sex: Male
  Weight: 122 kg

DRUGS (6)
  1. TRUVADA [Suspect]
     Active Substance: EMTRICITABINE\TENOFOVIR DISOPROXIL FUMARATE
     Indication: HIV INFECTION
     Dosage: 200/45
     Route: 065
     Dates: start: 20140514, end: 20150510
  2. EVIPLERA [Suspect]
     Active Substance: EMTRICITABINE\RILPIVIRINE\TENOFOVIR DISOPROXIL FUMARATE
     Indication: HIV INFECTION
     Dosage: 200/25/245
     Route: 065
     Dates: start: 20150511, end: 20180925
  3. NORVIR [Concomitant]
     Active Substance: RITONAVIR
     Dosage: UNK
     Dates: start: 20140524
  4. RITONAVIR. [Concomitant]
     Active Substance: RITONAVIR
  5. PREZISTA [Concomitant]
     Active Substance: DARUNAVIR ETHANOLATE
     Dosage: UNK
     Dates: start: 20140514, end: 20150510
  6. ODEFSEY [Suspect]
     Active Substance: EMTRICITABINE\RILPIVIRINE HYDROCHLORIDE\TENOFOVIR ALAFENAMIDE FUMARATE
     Indication: HIV INFECTION
     Dosage: 200/25/25
     Route: 065
     Dates: start: 20180926, end: 20210209

REACTIONS (2)
  - Non-alcoholic steatohepatitis [Recovering/Resolving]
  - Weight increased [Recovering/Resolving]

NARRATIVE: CASE EVENT DATE: 202001
